FAERS Safety Report 19091461 (Version 2)
Quarter: 2021Q2

REPORT INFORMATION
  Report Type: Spontaneous
  Country: JP (occurrence: JP)
  Receive Date: 20210405
  Receipt Date: 20210420
  Transmission Date: 20210717
  Serious: Yes (Hospitalization, Other)
  Sender: FDA-Public Use
  Company Number: NVSJ2021JP004955

PATIENT
  Age: 80 Year
  Sex: Female

DRUGS (6)
  1. NIFEDIPINE. [Concomitant]
     Active Substance: NIFEDIPINE
     Indication: CARDIAC FAILURE
     Dosage: 40 MG
     Route: 065
  2. ROSUVASTATIN. [Concomitant]
     Active Substance: ROSUVASTATIN
     Indication: CARDIAC FAILURE
     Dosage: 2.5 MG
     Route: 065
  3. INDAPAMIDE. [Concomitant]
     Active Substance: INDAPAMIDE
     Indication: CARDIAC FAILURE
     Dosage: 1 MG
     Route: 065
  4. DOXAZOSIN [Concomitant]
     Active Substance: DOXAZOSIN MESYLATE
     Indication: CARDIAC FAILURE
     Dosage: 2 MG
     Route: 065
  5. METGLUCO [Concomitant]
     Active Substance: METFORMIN HYDROCHLORIDE
     Indication: PRODUCT USED FOR UNKNOWN INDICATION
     Dosage: UNK
     Route: 065
  6. DIOVAN [Suspect]
     Active Substance: VALSARTAN
     Indication: HYPERTENSION
     Dosage: 80 MG
     Route: 048

REACTIONS (3)
  - Cardiac failure acute [Unknown]
  - Diabetes mellitus [Unknown]
  - Orthopnoea [Unknown]
